FAERS Safety Report 11580659 (Version 1)
Quarter: 2015Q3

REPORT INFORMATION
  Report Type: Report from Study
  Country: BR (occurrence: BR)
  Receive Date: 20150930
  Receipt Date: 20150930
  Transmission Date: 20151125
  Serious: Yes (Hospitalization, Other)
  Sender: FDA-Public Use
  Company Number: PHHY2015BR116293

PATIENT
  Sex: Female
  Weight: 56 kg

DRUGS (3)
  1. TRILEPTAL [Suspect]
     Active Substance: OXCARBAZEPINE
     Dosage: 3 DF, QD (300 MG IN MORNING, NOON AND NIGHT)
     Route: 065
  2. RITALIN [Suspect]
     Active Substance: METHYLPHENIDATE HYDROCHLORIDE
     Indication: PRODUCT USED FOR UNKNOWN INDICATION
     Dosage: 10 MG, UNK
     Route: 065
  3. TRILEPTAL [Suspect]
     Active Substance: OXCARBAZEPINE
     Indication: BIPOLAR DISORDER
     Dosage: 3 DF, QD (600 MG IN MORNING, NOON AND NIGHT)
     Route: 065

REACTIONS (8)
  - Thrombosis [Recovering/Resolving]
  - Memory impairment [Recovering/Resolving]
  - Head injury [Recovering/Resolving]
  - Loss of consciousness [Recovering/Resolving]
  - Cerebral haemorrhage [Recovering/Resolving]
  - Seizure [Recovering/Resolving]
  - Muscle atrophy [Recovering/Resolving]
  - Off label use [Unknown]
